FAERS Safety Report 5423325-X (Version None)
Quarter: 2007Q3

REPORT INFORMATION
  Report Type: 
  Country: None (occurrence: None)
  Receive Date: 20070823
  Receipt Date: 20070820
  Transmission Date: 20080115
  Serious: Yes (Death, Hospitalization)
  Sender: FDA-Public Use
  Company Number: PHEH2007US11274

PATIENT
  Age: 62 Year
  Sex: Male

DRUGS (1)
  1. NEORAL [Suspect]
     Indication: IMMUNOSUPPRESSION
     Dosage: 200 MG, UNK
     Route: 048
     Dates: start: 20060628, end: 20070731

REACTIONS (9)
  - CHEST X-RAY ABNORMAL [None]
  - CHILLS [None]
  - CONFUSIONAL STATE [None]
  - HYPOTENSION [None]
  - INCONTINENCE [None]
  - MALAISE [None]
  - PNEUMONIA [None]
  - PYREXIA [None]
  - SEPSIS [None]
